FAERS Safety Report 23592919 (Version 2)
Quarter: 2024Q2

REPORT INFORMATION
  Report Type: Spontaneous
  Country: US (occurrence: US)
  Receive Date: 20240304
  Receipt Date: 20240411
  Transmission Date: 20240716
  Serious: Yes (Other)
  Sender: FDA-Public Use
  Company Number: US-PFIZER INC-PV202400029843

PATIENT
  Age: 58 Year
  Sex: Female

DRUGS (2)
  1. XELJANZ XR [Suspect]
     Active Substance: TOFACITINIB CITRATE
     Indication: Rheumatoid arthritis
     Dosage: 11 MG, 1X/DAY
     Route: 048
     Dates: start: 20240224, end: 20240225
  2. HUMIRA [Concomitant]
     Active Substance: ADALIMUMAB
     Dosage: HUMIRA PEN (2/BOX)

REACTIONS (2)
  - Breast cancer stage I [Unknown]
  - Bronchitis [Recovered/Resolved]
